FAERS Safety Report 10467092 (Version 1)
Quarter: 2014Q3

REPORT INFORMATION
  Report Type: Spontaneous
  Country: US (occurrence: US)
  Receive Date: 20140922
  Receipt Date: 20140922
  Transmission Date: 20150326
  Serious: No
  Sender: FDA-Public Use
  Company Number: US-ASTRAZENECA-2014SE69021

PATIENT
  Age: 85 Year
  Sex: Male
  Weight: 140.6 kg

DRUGS (12)
  1. NAPROXEN. [Concomitant]
     Active Substance: NAPROXEN
  2. KOLRCON [Concomitant]
  3. XARELTO [Concomitant]
     Active Substance: RIVAROXABAN
  4. ESCITALOPRAM [Concomitant]
     Active Substance: ESCITALOPRAM OXALATE
  5. SYMBICORT [Suspect]
     Active Substance: BUDESONIDE\FORMOTEROL FUMARATE DIHYDRATE
     Indication: DYSPNOEA
     Dosage: 80/4.5 MCG, 2 PUFFS BID
     Route: 055
     Dates: start: 201409, end: 201409
  6. BUSPIRONE [Concomitant]
     Active Substance: BUSPIRONE HYDROCHLORIDE
  7. SIMVASTATIN. [Concomitant]
     Active Substance: SIMVASTATIN
  8. TRAMADOL-HC [Concomitant]
     Indication: ARTHRALGIA
  9. LISINOPRIL. [Suspect]
     Active Substance: LISINOPRIL
     Route: 048
  10. COMBVIENT [Concomitant]
     Indication: INHALATION THERAPY
     Dosage: 20MCG-100 HS
  11. SYMBICORT [Suspect]
     Active Substance: BUDESONIDE\FORMOTEROL FUMARATE DIHYDRATE
     Indication: COUGH
     Dosage: 80/4.5 MCG, 2 PUFFS BID
     Route: 055
     Dates: start: 201409, end: 201409
  12. COREG [Concomitant]
     Active Substance: CARVEDILOL
     Indication: CARDIAC DISORDER

REACTIONS (4)
  - Urticaria [Unknown]
  - Memory impairment [Unknown]
  - Off label use [Recovered/Resolved]
  - Adverse drug reaction [Unknown]
